FAERS Safety Report 7906064-2 (Version None)
Quarter: 2011Q4

REPORT INFORMATION
  Report Type: 
  Country: None (occurrence: None)
  Receive Date: 20111110
  Receipt Date: 20111110
  Transmission Date: 20120403
  Serious: Yes (Hospitalization)
  Sender: FDA-Public Use
  Company Number: None

PATIENT
  Age: 40 Year
  Sex: Female
  Weight: 63.502 kg

DRUGS (2)
  1. LEVAQUIN [Suspect]
     Indication: NASAL CONGESTION
     Dosage: ONCE AFTER BREAKFAST
     Dates: start: 20060101, end: 20060103
  2. LEVAQUIN [Suspect]
     Indication: SINUSITIS
     Dosage: ONCE AFTER BREAKFAST
     Dates: start: 20060101, end: 20060103

REACTIONS (2)
  - PANCREATITIS [None]
  - GASTRIC PH DECREASED [None]
